FAERS Safety Report 25764292 (Version 1)
Quarter: 2025Q3

REPORT INFORMATION
  Report Type: Spontaneous
  Country: US (occurrence: US)
  Receive Date: 20250905
  Receipt Date: 20250905
  Transmission Date: 20251021
  Serious: No
  Sender: DOMPE FARMACEUTICI
  Company Number: US-FARMAPROD-202412-4335

PATIENT
  Sex: Female

DRUGS (1)
  1. OXERVATE [Suspect]
     Active Substance: CENEGERMIN-BKBJ
     Indication: Product used for unknown indication
     Route: 047
     Dates: start: 20241211

REACTIONS (13)
  - Tinnitus [Recovering/Resolving]
  - Migraine [Recovering/Resolving]
  - Photophobia [Unknown]
  - Throat irritation [Recovering/Resolving]
  - Pruritus [Recovering/Resolving]
  - Conjunctival haemorrhage [Unknown]
  - Sinusitis [Unknown]
  - Oropharyngeal pain [Unknown]
  - Accidental overdose [Unknown]
  - Ear congestion [Unknown]
  - Eye pain [Unknown]
  - Foreign body sensation in eyes [Unknown]
  - Headache [Unknown]

NARRATIVE: CASE EVENT DATE: 20241211
